FAERS Safety Report 4844546-0 (Version None)
Quarter: 2005Q4

REPORT INFORMATION
  Report Type: 
  Country: None (occurrence: None)
  Receive Date: 20051129
  Receipt Date: 20051114
  Transmission Date: 20060501
  Serious: Yes (Other)
  Sender: FDA-Public Use
  Company Number: GXKR2005GB01971

PATIENT
  Sex: Female

DRUGS (7)
  1. FUROSEMIDE [Suspect]
     Dosage: 40 MG, TID, ORAL
     Route: 048
  2. LANSOPRAZOLE [Concomitant]
  3. METFORMIN HCL [Concomitant]
  4. GLICLAZIDE (GLICLAZIDE) [Concomitant]
  5. FERROUS SULPHATE (FERROUS SULFATE) [Concomitant]
  6. ASPIRIN [Concomitant]
  7. HALOPERIDOL [Concomitant]

REACTIONS (5)
  - BLOOD CREATININE INCREASED [None]
  - BLOOD SODIUM INCREASED [None]
  - BLOOD UREA INCREASED [None]
  - CONFUSIONAL STATE [None]
  - DEHYDRATION [None]
